FAERS Safety Report 6379684-7 (Version None)
Quarter: 2009Q3

REPORT INFORMATION
  Report Type: 
  Country: None (occurrence: None)
  Receive Date: 20090924
  Receipt Date: 20090924
  Transmission Date: 20100115
  Serious: Yes (Hospitalization)
  Sender: FDA-Public Use
  Company Number: None

PATIENT
  Age: 63 Year
  Sex: Male
  Weight: 120.7 kg

DRUGS (2)
  1. AMPHOTERICIN B [Suspect]
     Indication: EVIDENCE BASED TREATMENT
     Dosage: 400 MG EVERY DAY IV
     Route: 042
     Dates: start: 20090626, end: 20090627
  2. AMPHOTERICIN B [Suspect]
     Indication: FUNGAL INFECTION
     Dosage: 400 MG EVERY DAY IV
     Route: 042
     Dates: start: 20090626, end: 20090627

REACTIONS (5)
  - ANXIETY [None]
  - CHILLS [None]
  - HYPERHIDROSIS [None]
  - OXYGEN SATURATION DECREASED [None]
  - TACHYPNOEA [None]
